FAERS Safety Report 6997010-7 (Version None)
Quarter: 2010Q3

REPORT INFORMATION
  Report Type: 
  Country: None (occurrence: None)
  Receive Date: 20100918
  Receipt Date: 20090922
  Transmission Date: 20110219
  Serious: No
  Sender: FDA-Public Use
  Company Number: US-WYE-H10651909

PATIENT
  Sex: Male
  Weight: 102.15 kg

DRUGS (4)
  1. PRISTIQ [Suspect]
     Indication: DEPRESSION
     Route: 048
     Dates: start: 20090601, end: 20090701
  2. LOTREL [Concomitant]
  3. VALIUM [Concomitant]
  4. ALLOPURINOL [Concomitant]

REACTIONS (1)
  - SOMNOLENCE [None]
